FAERS Safety Report 10357538 (Version 2)
Quarter: 2014Q3

REPORT INFORMATION
  Report Type: Report from Study
  Country: US (occurrence: US)
  Receive Date: 20140801
  Receipt Date: 20140821
  Transmission Date: 20150326
  Serious: Yes (Hospitalization, Other)
  Sender: FDA-Public Use
  Company Number: US-SA-2014SA100319

PATIENT
  Age: 56 Year
  Sex: Female

DRUGS (18)
  1. PROAIR HFA [Concomitant]
     Active Substance: ALBUTEROL SULFATE
     Dosage: DOSE:2 PUFF(S)
  2. PHENERGAN [Concomitant]
     Active Substance: PROMETHAZINE HYDROCHLORIDE
     Indication: NAUSEA
  3. ASPIRIN. [Concomitant]
     Active Substance: ASPIRIN
  4. SOLOSTAR [Concomitant]
     Active Substance: DEVICE
     Indication: TYPE 2 DIABETES MELLITUS
     Dates: start: 1999
  5. LASIX [Concomitant]
     Active Substance: FUROSEMIDE
     Dosage: 120 MG IN MORNING AND 80 MG NIGHT
  6. CLOPIDOGREL [Concomitant]
     Active Substance: CLOPIDOGREL BISULFATE
  7. PHENERGAN [Concomitant]
     Active Substance: PROMETHAZINE HYDROCHLORIDE
     Indication: HEADACHE
  8. NITROGLYCERINE [Concomitant]
     Active Substance: NITROGLYCERIN
  9. CLONAZEPAM. [Concomitant]
     Active Substance: CLONAZEPAM
  10. ALL OTHER THERAPEUTIC PRODUCTS [Concomitant]
     Active Substance: UNSPECIFIED INGREDIENT
  11. COREG [Concomitant]
     Active Substance: CARVEDILOL
  12. NORCO [Concomitant]
     Active Substance: ACETAMINOPHEN\HYDROCODONE BITARTRATE
  13. PRAVASTATIN [Concomitant]
     Active Substance: PRAVASTATIN\PRAVASTATIN SODIUM
  14. COLACE [Concomitant]
     Active Substance: DOCUSATE SODIUM
  15. METOLAZONE. [Concomitant]
     Active Substance: METOLAZONE
  16. LACTULOSE. [Concomitant]
     Active Substance: LACTULOSE
  17. LANTUS SOLOSTAR [Suspect]
     Active Substance: INSULIN GLARGINE
     Indication: TYPE 2 DIABETES MELLITUS
     Dosage: PEN OR VIALS DOSE:70 UNIT(S)
     Route: 065
     Dates: start: 1999
  18. GABAPENTIN. [Concomitant]
     Active Substance: GABAPENTIN

REACTIONS (6)
  - Myocardial infarction [Not Recovered/Not Resolved]
  - Blood glucose increased [Unknown]
  - Pulmonary oedema [Not Recovered/Not Resolved]
  - Dehydration [Not Recovered/Not Resolved]
  - Renal failure [Not Recovered/Not Resolved]
  - Hepatic cirrhosis [Not Recovered/Not Resolved]

NARRATIVE: CASE EVENT DATE: 201407
